FAERS Safety Report 10913720 (Version 1)
Quarter: 2015Q1

REPORT INFORMATION
  Report Type: Spontaneous
  Country: ES (occurrence: ES)
  Receive Date: 20150313
  Receipt Date: 20150313
  Transmission Date: 20150721
  Serious: Yes (Other)
  Sender: FDA-Public Use
  Company Number: ES-PFIZER INC-2015083571

PATIENT
  Age: 57 Year
  Sex: Female

DRUGS (9)
  1. LYRICA [Suspect]
     Active Substance: PREGABALIN
     Indication: SPONDYLOLISTHESIS
     Dosage: 25 MG, 2X/DAY
     Route: 048
     Dates: start: 2014, end: 20141228
  2. ATORVASTATIN [Concomitant]
     Active Substance: ATORVASTATIN
     Dosage: 10 MG, 1X/DAY
     Route: 048
  3. DILTIAZEM HYDROCHLORIDE. [Concomitant]
     Active Substance: DILTIAZEM HYDROCHLORIDE
     Dosage: 120 MG, 2X/DAY
     Route: 048
  4. LATANOPROST. [Concomitant]
     Active Substance: LATANOPROST
     Dosage: 2.5 ML, 2X/DAY
     Route: 047
  5. SERETIDE [Concomitant]
     Active Substance: FLUTICASONE FUROATE\SALMETEROL XINAFOATE
     Indication: BRONCHITIS CHRONIC
     Dosage: UNK , 2X/DAY (50 UG/500 UG TWICE DAILY), (TOTAL DAILY DOSE: 100 UG/1000 UG)
     Route: 055
  6. TRAMADOL HYDROCHLORIDE. [Concomitant]
     Active Substance: TRAMADOL HYDROCHLORIDE
     Indication: SPONDYLOLISTHESIS
     Dosage: UNK, 3X/DAY
     Route: 048
  7. APIXABAN [Concomitant]
     Active Substance: APIXABAN
     Dosage: 5 MG, 2X/DAY
     Route: 048
  8. TERBASMIN TURBUHALER [Concomitant]
     Active Substance: TERBUTALINE SULFATE
     Indication: BRONCHITIS CHRONIC
     Route: 055
  9. RABEPRAZOLE SODIUM. [Concomitant]
     Active Substance: RABEPRAZOLE SODIUM
     Indication: ABDOMINAL PAIN UPPER
     Dosage: 20 MG, 1X/DAY
     Route: 048

REACTIONS (2)
  - Tachycardia [Recovered/Resolved]
  - Urinary incontinence [Recovered/Resolved]

NARRATIVE: CASE EVENT DATE: 20141228
